FAERS Safety Report 14145394 (Version 5)
Quarter: 2018Q3

REPORT INFORMATION
  Report Type: Spontaneous
  Country: FR (occurrence: FR)
  Receive Date: 20171031
  Receipt Date: 20180719
  Transmission Date: 20181010
  Serious: Yes (Hospitalization, Other)
  Sender: FDA-Public Use
  Company Number: FR-ASTRAZENECA-2017SF10206

PATIENT
  Age: 19068 Day
  Sex: Male

DRUGS (25)
  1. INEXIUM [Suspect]
     Active Substance: ESOMEPRAZOLE
     Indication: GASTROOESOPHAGEAL REFLUX DISEASE
     Dosage: ESOMEPRAZOLE MAGNESIUM
     Route: 048
     Dates: end: 20171009
  2. DAFALGAN [Suspect]
     Active Substance: ACETAMINOPHEN
     Indication: ANALGESIC THERAPY
     Dosage: PARACETAMOL
     Route: 048
     Dates: end: 20171009
  3. PERMIXON [Suspect]
     Active Substance: HERBALS\SAW PALMETTO
     Route: 048
     Dates: end: 20171009
  4. HUMALOG [Concomitant]
     Active Substance: INSULIN LISPRO
     Indication: DIABETES MELLITUS
     Dates: start: 201203
  5. CRESTOR [Suspect]
     Active Substance: ROSUVASTATIN CALCIUM
     Indication: HYPERCHOLESTEROLAEMIA
     Route: 048
     Dates: start: 201203, end: 20171009
  6. INEXIUM [Suspect]
     Active Substance: ESOMEPRAZOLE
     Indication: REGURGITATION
     Dosage: ESOMEPRAZOLE MAGNESIUM
     Route: 048
     Dates: end: 20171009
  7. DAFALGAN [Suspect]
     Active Substance: ACETAMINOPHEN
     Indication: PAIN
     Route: 065
  8. DAFALGAN [Suspect]
     Active Substance: ACETAMINOPHEN
     Indication: ANALGESIC THERAPY
     Route: 065
  9. INEXIUM [Suspect]
     Active Substance: ESOMEPRAZOLE
     Indication: GASTROOESOPHAGEAL REFLUX DISEASE
     Route: 048
     Dates: end: 20171009
  10. DAFALGAN [Suspect]
     Active Substance: ACETAMINOPHEN
     Indication: ANALGESIC THERAPY
     Dosage: PARACETAMOL
     Route: 048
  11. FLUCONAZOLE. [Concomitant]
     Active Substance: FLUCONAZOLE
     Dates: end: 20170927
  12. DESLORATADINE. [Suspect]
     Active Substance: DESLORATADINE
     Route: 048
     Dates: end: 20171009
  13. LEPTICUR [Concomitant]
     Active Substance: TROPATEPINE HYDROCHLORIDE
     Dates: start: 20170924
  14. DAFALGAN [Suspect]
     Active Substance: ACETAMINOPHEN
     Indication: PAIN
     Route: 048
     Dates: end: 20171009
  15. DAFALGAN [Suspect]
     Active Substance: ACETAMINOPHEN
     Indication: ANALGESIC THERAPY
     Route: 048
     Dates: end: 20171009
  16. AMLODIPINE [Concomitant]
     Active Substance: AMLODIPINE BESYLATE
     Route: 048
     Dates: start: 20170928
  17. PREVISCAN [Concomitant]
     Indication: DIABETES MELLITUS
     Dates: start: 201203
  18. LOXAPAC [Concomitant]
     Active Substance: LOXAPINE
  19. INEXIUM [Suspect]
     Active Substance: ESOMEPRAZOLE
     Indication: REGURGITATION
     Route: 048
     Dates: end: 20171009
  20. BIPRETERAX [Concomitant]
     Active Substance: INDAPAMIDE\PERINDOPRIL
     Indication: DIABETES MELLITUS
     Dates: start: 201203, end: 20170927
  21. VENLAFAXINE HYDROCHLORIDE. [Suspect]
     Active Substance: VENLAFAXINE HYDROCHLORIDE
     Indication: DEPRESSION
     Route: 048
     Dates: start: 20170929, end: 20171016
  22. ABILIFY [Suspect]
     Active Substance: ARIPIPRAZOLE
     Indication: DELIRIUM
     Route: 048
     Dates: start: 20170929, end: 20171009
  23. DAFALGAN [Suspect]
     Active Substance: ACETAMINOPHEN
     Indication: PAIN
     Dosage: PARACETAMOL
     Route: 048
  24. DAFALGAN [Suspect]
     Active Substance: ACETAMINOPHEN
     Indication: PAIN
     Dosage: PARACETAMOL
     Route: 048
     Dates: end: 20171009
  25. VALIUM [Concomitant]
     Active Substance: DIAZEPAM

REACTIONS (3)
  - Product use in unapproved indication [Unknown]
  - Hepatocellular injury [Recovering/Resolving]
  - Transaminases increased [Recovering/Resolving]

NARRATIVE: CASE EVENT DATE: 20171006
